FAERS Safety Report 20923668 (Version 1)
Quarter: 2022Q2

REPORT INFORMATION
  Report Type: Spontaneous
  Country: US (occurrence: US)
  Receive Date: 20220607
  Receipt Date: 20220607
  Transmission Date: 20220721
  Serious: Yes (Hospitalization, Other)
  Sender: FDA-Public Use
  Company Number: US-APOTEX-2022AP008694

PATIENT
  Age: 54 Year
  Sex: Male

DRUGS (8)
  1. DIVALPROEX SODIUM [Suspect]
     Active Substance: DIVALPROEX SODIUM
     Indication: Hostility
     Dosage: 500 MILLIGRAM, BID
     Route: 065
  2. DIVALPROEX SODIUM [Suspect]
     Active Substance: DIVALPROEX SODIUM
     Indication: Aggression
     Dosage: EVENING DOSEWAS TAPERED TO 250 MG
     Route: 065
  3. OLANZAPINE [Suspect]
     Active Substance: OLANZAPINE
     Indication: Hostility
     Dosage: 20 MG/DAY IN DIVIDED DOSING
     Route: 065
  4. OLANZAPINE [Suspect]
     Active Substance: OLANZAPINE
     Indication: Aggression
     Dosage: 5 MG EVERY MORNING AND 15 MG EVERY EVENING
     Route: 065
  5. OLANZAPINE [Suspect]
     Active Substance: OLANZAPINE
     Indication: Hostility
     Dosage: 20 MG/DAY IN DIVIDED DOSING
     Route: 065
  6. OLANZAPINE [Suspect]
     Active Substance: OLANZAPINE
     Indication: Aggression
  7. RISPERIDONE [Suspect]
     Active Substance: RISPERIDONE
     Indication: Hostility
     Dosage: 2 MILLIGRAM, Q.H.S.
     Route: 065
  8. RISPERIDONE [Suspect]
     Active Substance: RISPERIDONE
     Indication: Aggression
     Dosage: 6 MILLIGRAM, QD
     Route: 065

REACTIONS (2)
  - Neutropenia [Recovered/Resolved]
  - Product substitution issue [Unknown]
